FAERS Safety Report 4959618-X (Version None)
Quarter: 2006Q1

REPORT INFORMATION
  Report Type: 
  Country: None (occurrence: None)
  Receive Date: 20060331
  Receipt Date: 20060222
  Transmission Date: 20060701
  Serious: Yes (Hospitalization)
  Sender: FDA-Public Use
  Company Number: JP-ROCHE-439992

PATIENT
  Age: 12 Year
  Sex: Male
  Weight: 39 kg

DRUGS (2)
  1. TAMIFLU [Suspect]
     Route: 048
     Dates: start: 20060222, end: 20060222
  2. CALONAL [Concomitant]
     Route: 048
     Dates: start: 20060222, end: 20060222

REACTIONS (4)
  - ENCEPHALOPATHY [None]
  - HALLUCINATION [None]
  - HALLUCINATION, VISUAL [None]
  - VOMITING [None]
